FAERS Safety Report 14625098 (Version 4)
Quarter: 2018Q2

REPORT INFORMATION
  Report Type: Spontaneous
  Country: IT (occurrence: IT)
  Receive Date: 20180312
  Receipt Date: 20180605
  Transmission Date: 20180711
  Serious: Yes (Other)
  Sender: FDA-Public Use
  Company Number: IT-UCBSA-2017053118

PATIENT
  Age: 32 Year
  Sex: Male

DRUGS (6)
  1. FRISTAMIN [Concomitant]
     Active Substance: LORATADINE
     Indication: HYPERSENSITIVITY
     Dosage: UNK
     Dates: start: 201709, end: 2017
  2. FRISTAMIN [Concomitant]
     Active Substance: LORATADINE
     Dosage: 0.25 DF, ONCE DAILY (QD)
     Dates: start: 20171215
  3. BENTELAN [Concomitant]
     Active Substance: BETAMETHASONE SODIUM PHOSPHATE
     Indication: PRODUCT USED FOR UNKNOWN INDICATION
     Dosage: UNK
     Dates: start: 20171120
  4. FRISTAMIN [Concomitant]
     Active Substance: LORATADINE
     Dosage: 1 DF, ONCE DAILY (QD)
     Dates: start: 201711, end: 201712
  5. FRISTAMIN [Concomitant]
     Active Substance: LORATADINE
     Dosage: 0.5 DF, ONCE DAILY (QD)
     Dates: start: 20171210, end: 201712
  6. XYZAL [Suspect]
     Active Substance: LEVOCETIRIZINE DIHYDROCHLORIDE
     Indication: HYPERSENSITIVITY
     Dosage: 5 MG, ONCE DAILY (QD)
     Route: 048
     Dates: start: 201709, end: 20171120

REACTIONS (4)
  - Urticaria [Not Recovered/Not Resolved]
  - Skin warm [Not Recovered/Not Resolved]
  - Pruritus generalised [Not Recovered/Not Resolved]
  - Weight increased [Unknown]

NARRATIVE: CASE EVENT DATE: 20171122
